FAERS Safety Report 5701788-X (Version None)
Quarter: 2008Q2

REPORT INFORMATION
  Report Type: 
  Country: None (occurrence: None)
  Receive Date: 20080408
  Receipt Date: 20080401
  Transmission Date: 20081010
  Serious: Yes (Life-Threatening, Other)
  Sender: FDA-Public Use
  Company Number: 163-C5013-08040094

PATIENT
  Age: 55 Year
  Sex: Male
  Weight: 63.3 kg

DRUGS (3)
  1. CC-5013 (LENALIDOMIDE) (10 MILLIGRAM, CAPSULES) [Suspect]
     Indication: MULTIPLE MYELOMA
     Dosage: 10 MG, ON DAYS 1 - 21, ORAL; 25 MG, ON DAYS 1-21, ORAL
     Route: 048
     Dates: start: 20050505, end: 20070222
  2. CC-5013 (LENALIDOMIDE) (10 MILLIGRAM, CAPSULES) [Suspect]
     Indication: MULTIPLE MYELOMA
     Dosage: 10 MG, ON DAYS 1 - 21, ORAL; 25 MG, ON DAYS 1-21, ORAL
     Route: 048
     Dates: start: 20070201, end: 20080303
  3. DEXAMETHASONE TAB [Suspect]
     Indication: MULTIPLE MYELOMA
     Dosage: ORAL
     Route: 048
     Dates: start: 20050505

REACTIONS (4)
  - BONE MARROW FAILURE [None]
  - DRUG INEFFECTIVE [None]
  - MYELODYSPLASTIC SYNDROME [None]
  - PANCYTOPENIA [None]
